FAERS Safety Report 5875398-8 (Version None)
Quarter: 2008Q3

REPORT INFORMATION
  Report Type: 
  Country: None (occurrence: None)
  Receive Date: 20080909
  Receipt Date: 20080903
  Transmission Date: 20090109
  Serious: Yes (Other)
  Sender: FDA-Public Use
  Company Number: US-JNJCH-2008022710

PATIENT
  Sex: Female

DRUGS (2)
  1. BENADRYL [Suspect]
     Indication: DRUG USE FOR UNKNOWN INDICATION
     Dosage: TEXT:ONE KAPSEAL (FREQUENCY UNSPECIFIED)
     Route: 048
  2. DRUG, UNSPECIFIED [Concomitant]
     Indication: NEOPLASM MALIGNANT
     Dosage: TEXT:UNSPECIFIED
     Route: 065

REACTIONS (1)
  - THROAT TIGHTNESS [None]
